FAERS Safety Report 6850297-3 (Version None)
Quarter: 2010Q3

REPORT INFORMATION
  Report Type: 
  Country: None (occurrence: None)
  Receive Date: 20100716
  Receipt Date: 20071012
  Transmission Date: 20110219
  Serious: No
  Sender: FDA-Public Use
  Company Number: US-PFIZER INC-2007087014

PATIENT
  Sex: Female
  Weight: 55.3 kg

DRUGS (5)
  1. CHANTIX [Suspect]
     Indication: SMOKING CESSATION THERAPY
     Dates: start: 20070101
  2. ATENOLOL [Concomitant]
  3. ADVAIR DISKUS 100/50 [Concomitant]
  4. VALIUM [Concomitant]
  5. ACETYLSALICYLIC ACID [Concomitant]

REACTIONS (5)
  - ABDOMINAL PAIN [None]
  - ABDOMINAL PAIN UPPER [None]
  - CONSTIPATION [None]
  - FLATULENCE [None]
  - INSOMNIA [None]
